FAERS Safety Report 6383790-0 (Version None)
Quarter: 2009Q4

REPORT INFORMATION
  Report Type: 
  Country: None (occurrence: None)
  Receive Date: 20091001
  Receipt Date: 20090919
  Transmission Date: 20100525
  Serious: Yes (Hospitalization)
  Sender: FDA-Public Use
  Company Number: US-JNJFOC-20090906125

PATIENT
  Sex: Male

DRUGS (5)
  1. TAPENTADOL HYDROCHLORIDE [Suspect]
     Indication: PAIN
     Route: 048
  2. LYRICA [Concomitant]
     Indication: PAIN
     Route: 048
  3. BACLOFEN [Concomitant]
     Indication: PAIN
     Route: 048
  4. OXYCODONE HCL AND ACETAMINOPHEN [Concomitant]
     Indication: PAIN
     Dosage: 10/325 MG
     Route: 048
  5. MORPHINE SULFATE [Concomitant]
     Indication: PAIN
     Route: 048

REACTIONS (1)
  - PSYCHOTIC DISORDER [None]
